FAERS Safety Report 6824899-4 (Version None)
Quarter: 2010Q3

REPORT INFORMATION
  Report Type: 
  Country: None (occurrence: None)
  Receive Date: 20100708
  Receipt Date: 20070103
  Transmission Date: 20110219
  Serious: Yes (Other)
  Sender: FDA-Public Use
  Company Number: US-PFIZER INC-2006142181

PATIENT
  Sex: Female
  Weight: 64.4 kg

DRUGS (6)
  1. CHANTIX [Suspect]
     Indication: SMOKING CESSATION THERAPY
     Dates: start: 20060101
  2. SYNTHROID [Concomitant]
  3. PLAVIX [Concomitant]
  4. ACETYLSALICYLIC ACID [Concomitant]
  5. CRESTOR [Concomitant]
  6. ALTACE [Concomitant]

REACTIONS (4)
  - ARTHRALGIA [None]
  - FLATULENCE [None]
  - MYALGIA [None]
  - NAUSEA [None]
